FAERS Safety Report 10464595 (Version 2)
Quarter: 2014Q4

REPORT INFORMATION
  Report Type: Spontaneous
  Country: US (occurrence: US)
  Receive Date: 20140919
  Receipt Date: 20141107
  Transmission Date: 20150528
  Serious: Yes (Other)
  Sender: FDA-Public Use
  Company Number: US-BAYER-2014-139095

PATIENT
  Age: 43 Year
  Sex: Female
  Weight: 58.96 kg

DRUGS (1)
  1. MIRENA [Suspect]
     Active Substance: LEVONORGESTREL
     Indication: MENORRHAGIA
     Dosage: 20 MCG/24HR, CONT
     Route: 015
     Dates: start: 201403, end: 20140915

REACTIONS (11)
  - Fatigue [None]
  - Menorrhagia [Not Recovered/Not Resolved]
  - Genital haemorrhage [Recovering/Resolving]
  - Loss of libido [None]
  - Depression suicidal [Recovered/Resolved]
  - Abdominal pain lower [Not Recovered/Not Resolved]
  - Hypomenorrhoea [None]
  - Crying [Recovered/Resolved]
  - Polymenorrhoea [None]
  - Hot flush [Recovered/Resolved]
  - Feeling abnormal [Recovered/Resolved]

NARRATIVE: CASE EVENT DATE: 2014
